FAERS Safety Report 15841440 (Version 4)
Quarter: 2021Q1

REPORT INFORMATION
  Report Type: Report from Study
  Country: US (occurrence: US)
  Receive Date: 20190118
  Receipt Date: 20210326
  Transmission Date: 20210419
  Serious: No
  Sender: FDA-Public Use
  Company Number: PHEH2019US002554

PATIENT
  Sex: Female

DRUGS (1)
  1. AFINITOR [Suspect]
     Active Substance: EVEROLIMUS
     Indication: PRODUCT USED FOR UNKNOWN INDICATION
     Dosage: 7.5 MG, OT
     Route: 048

REACTIONS (6)
  - Fall [Unknown]
  - Viral infection [Unknown]
  - Somnolence [Unknown]
  - Illness [Unknown]
  - Localised infection [Unknown]
  - Product dispensing error [Unknown]
